FAERS Safety Report 4865683-0 (Version None)
Quarter: 2005Q4

REPORT INFORMATION
  Report Type: 
  Country: None (occurrence: None)
  Receive Date: 20051220
  Receipt Date: 20051212
  Transmission Date: 20060501
  Serious: Yes (Hospitalization)
  Sender: FDA-Public Use
  Company Number: AZAUS200500472

PATIENT
  Age: 78 Year
  Sex: Female
  Weight: 106.5953 kg

DRUGS (3)
  1. VIDAZA [Suspect]
     Indication: MYELODYSPLASTIC SYNDROME
     Dosage: 75 MG/M2 (170 MG, DAILY), SUBCUTANEOUS
     Route: 058
     Dates: start: 20051209, end: 20051211
  2. ACYCLOVIR [Concomitant]
  3. CIPROFLOXACIN [Concomitant]

REACTIONS (1)
  - PULMONARY EMBOLISM [None]
